FAERS Safety Report 24155881 (Version 1)
Quarter: 2024Q3

REPORT INFORMATION
  Report Type: Spontaneous
  Country: VN (occurrence: VN)
  Receive Date: 20240731
  Receipt Date: 20240731
  Transmission Date: 20241017
  Serious: Yes (Other)
  Sender: RANBAXY
  Company Number: VN-SUN PHARMACEUTICAL INDUSTRIES LTD-2024R1-459544

PATIENT
  Age: 64 Year
  Sex: Male

DRUGS (1)
  1. AMLODIPINE BESYLATE\ATENOLOL [Suspect]
     Active Substance: AMLODIPINE BESYLATE\ATENOLOL
     Indication: Essential hypertension
     Dosage: 5/50 MG DAY
     Route: 065

REACTIONS (5)
  - Bradycardia [Recovering/Resolving]
  - Cardiomyopathy [Recovering/Resolving]
  - Hypotension [Recovering/Resolving]
  - Metabolic acidosis [Recovering/Resolving]
  - Overdose [Unknown]
